FAERS Safety Report 24735852 (Version 1)
Quarter: 2024Q4

REPORT INFORMATION
  Report Type: Spontaneous
  Country: US (occurrence: US)
  Receive Date: 20241216
  Receipt Date: 20241216
  Transmission Date: 20250115
  Serious: No
  Sender: ABBVIE
  Company Number: US-ABBVIE-6044002

PATIENT
  Sex: Female

DRUGS (1)
  1. BOTOX [Suspect]
     Active Substance: ONABOTULINUMTOXINA
     Indication: Skin wrinkling
     Dosage: TIME INTERVAL: AS NECESSARY: 40 UNIT
     Route: 030
     Dates: end: 20240516

REACTIONS (2)
  - Aphasia [Not Recovered/Not Resolved]
  - Spasmodic dysphonia [Not Recovered/Not Resolved]

NARRATIVE: CASE EVENT DATE: 20240901
